FAERS Safety Report 5368424-6 (Version None)
Quarter: 2007Q2

REPORT INFORMATION
  Report Type: 
  Country: None (occurrence: None)
  Receive Date: 20070621
  Receipt Date: 20070621
  Transmission Date: 20071010
  Serious: Yes (Other)
  Sender: FDA-Public Use
  Company Number: None

PATIENT
  Age: 35 Year
  Sex: Male
  Weight: 124.7392 kg

DRUGS (1)
  1. BUPROPION HCL [Suspect]
     Indication: DEPRESSION
     Dosage: 300MG 1XDAY PO
     Route: 048
     Dates: start: 20070401, end: 20070601

REACTIONS (5)
  - DEPRESSION [None]
  - GASTRIC DISORDER [None]
  - HEADACHE [None]
  - PANIC ATTACK [None]
  - THERAPEUTIC RESPONSE UNEXPECTED WITH DRUG SUBSTITUTION [None]
